FAERS Safety Report 5582562-4 (Version None)
Quarter: 2007Q4

REPORT INFORMATION
  Report Type: 
  Country: None (occurrence: None)
  Receive Date: 20071130
  Receipt Date: 20070322
  Transmission Date: 20080405
  Serious: Yes (Disabling)
  Sender: FDA-Public Use
  Company Number: WAES 0703USA04385

PATIENT
  Age: 78 Year
  Sex: Male

DRUGS (1)
  1. FOSAMAX [Suspect]
     Dosage: 70 MG/WKY/PO
     Route: 048
     Dates: start: 20010214, end: 20050315

REACTIONS (2)
  - OSTEOMYELITIS [None]
  - OSTEONECROSIS [None]
